FAERS Safety Report 16143419 (Version 2)
Quarter: 2019Q2

REPORT INFORMATION
  Report Type: Spontaneous
  Country: US (occurrence: US)
  Receive Date: 20190401
  Receipt Date: 20190412
  Transmission Date: 20190711
  Serious: Yes (Hospitalization, Other)
  Sender: FDA-Public Use
  Company Number: US-009507513-1902USA009565

PATIENT
  Age: 69 Year
  Sex: Male
  Weight: 90.7 kg

DRUGS (13)
  1. AMANTADINE. [Suspect]
     Active Substance: AMANTADINE HYDROCHLORIDE
     Dosage: 137 MG, 1X/DAY AT BEDTIME
     Route: 048
     Dates: start: 201810
  2. MELOXICAM. [Concomitant]
     Active Substance: MELOXICAM
     Dosage: UNK
  3. MIRAPEX [Concomitant]
     Active Substance: PRAMIPEXOLE DIHYDROCHLORIDE
     Dosage: UNK
  4. SINEMET [Suspect]
     Active Substance: CARBIDOPA\LEVODOPA
     Dosage: UNK
  5. VITAMINS (UNSPECIFIED) [Concomitant]
     Active Substance: VITAMINS
     Dosage: UNK
  6. ZOLPIDEM TARTRATE. [Suspect]
     Active Substance: ZOLPIDEM TARTRATE
     Dosage: UNK
     Dates: end: 201812
  7. DEXPANTHENOL (+) DIMETHYL SULFOXIDE (+) HEPARIN SODIUM [Concomitant]
     Dosage: UNK
  8. AMANTADINE. [Suspect]
     Active Substance: AMANTADINE HYDROCHLORIDE
     Indication: DYSKINESIA
     Dosage: 137 MILLIGRAM, ONCE DAILY AT BEDTIME
     Route: 048
     Dates: start: 20180509, end: 201810
  9. NUPLAZID [Concomitant]
     Active Substance: PIMAVANSERIN TARTRATE
     Dosage: UNK
  10. SELEGILINE HYDROCHLORIDE. [Interacting]
     Active Substance: SELEGILINE HYDROCHLORIDE
     Dosage: UNK
  11. HORIZANT [Concomitant]
     Active Substance: GABAPENTIN ENACARBIL
     Dosage: UNK
  12. CYANOCOBALAMIN. [Concomitant]
     Active Substance: CYANOCOBALAMIN
     Dosage: UNK
  13. FENTANYL. [Interacting]
     Active Substance: FENTANYL
     Dosage: UNK, ONCE
     Route: 062
     Dates: start: 20181215, end: 20181215

REACTIONS (12)
  - Hypotension [Recovering/Resolving]
  - Somnambulism [Unknown]
  - Constipation [Unknown]
  - Presyncope [Recovered/Resolved]
  - Mental status changes [Recovering/Resolving]
  - Lethargy [Recovering/Resolving]
  - Fall [Unknown]
  - Toxic encephalopathy [Recovering/Resolving]
  - Toxicity to various agents [Recovering/Resolving]
  - Sleep terror [Recovered/Resolved]
  - Asthenia [Unknown]
  - Insomnia [Unknown]

NARRATIVE: CASE EVENT DATE: 2018
